FAERS Safety Report 9769436 (Version 1)
Quarter: 2013Q4

REPORT INFORMATION
  Report Type: Spontaneous
  Country: IL (occurrence: IL)
  Receive Date: 20131218
  Receipt Date: 20131218
  Transmission Date: 20140711
  Serious: Yes (Other)
  Sender: FDA-Public Use
  Company Number: IL-009507513-1312ISR006917

PATIENT
  Age: 60 Year
  Sex: Male

DRUGS (3)
  1. JANUET [Suspect]
     Dosage: UNK
     Route: 048
     Dates: end: 201309
  2. JANUET TABLETS [Suspect]
     Dosage: UNK
     Route: 048
     Dates: start: 201309
  3. L-THYROXIN [Concomitant]
     Dosage: UNK

REACTIONS (3)
  - Pancreatic carcinoma [Not Recovered/Not Resolved]
  - Blood glucose abnormal [Recovering/Resolving]
  - Weight decreased [Unknown]
